FAERS Safety Report 23357639 (Version 1)
Quarter: 2024Q1

REPORT INFORMATION
  Report Type: Report from Study
  Country: US (occurrence: US)
  Receive Date: 20240102
  Receipt Date: 20240102
  Transmission Date: 20240410
  Serious: Yes (Hospitalization, Other)
  Sender: FDA-Public Use
  Company Number: 2023-US-025455

PATIENT
  Sex: Male
  Weight: 53 kg

DRUGS (1)
  1. EPIDIOLEX [Suspect]
     Active Substance: CANNABIDIOL
     Indication: Product used for unknown indication
     Dosage: 5.4 MILLILITER, BID, G-TUBE

REACTIONS (2)
  - Septic shock [Unknown]
  - Gallbladder disorder [Unknown]
